FAERS Safety Report 13122425 (Version 1)
Quarter: 2017Q1

REPORT INFORMATION
  Report Type: Spontaneous
  Country: US (occurrence: US)
  Receive Date: 20170117
  Receipt Date: 20170117
  Transmission Date: 20170428
  Serious: No
  Sender: FDA-Public Use
  Company Number: US-ASTRAZENECA-2017SE03263

PATIENT
  Age: 20581 Day
  Sex: Female
  Weight: 68 kg

DRUGS (11)
  1. GLIMEPIRIDE. [Concomitant]
     Active Substance: GLIMEPIRIDE
     Indication: DIABETES MELLITUS
     Route: 048
     Dates: start: 2016
  2. FISH OIL [Concomitant]
     Active Substance: FISH OIL
     Indication: ILL-DEFINED DISORDER
     Route: 048
     Dates: start: 2014
  3. B-12 COMPLEX [Concomitant]
     Indication: ILL-DEFINED DISORDER
     Route: 048
     Dates: start: 2014
  4. ACYCLOVIR. [Concomitant]
     Active Substance: ACYCLOVIR
     Indication: RASH
     Dosage: 200.0MG AS REQUIRED
     Route: 048
     Dates: start: 1988
  5. VITAMIN C [Concomitant]
     Active Substance: ASCORBIC ACID
     Indication: ILL-DEFINED DISORDER
     Route: 051
     Dates: start: 2014
  6. VITAFUSION MULTIVITAMIN [Concomitant]
     Indication: SUPPORTIVE CARE
     Dosage: DAILY
     Route: 048
     Dates: start: 2016
  7. CALCIUM WITH VIT D-3 [Concomitant]
     Indication: ILL-DEFINED DISORDER
     Route: 048
     Dates: start: 2014
  8. IRON [Concomitant]
     Active Substance: IRON
     Indication: ILL-DEFINED DISORDER
     Route: 048
     Dates: start: 2014
  9. DIGOXIN. [Concomitant]
     Active Substance: DIGOXIN
     Indication: CARDIAC DISORDER
     Dosage: 2.5 MG, BY MOUTH, DAILY
     Route: 048
     Dates: start: 1976
  10. BYDUREON [Suspect]
     Active Substance: EXENATIDE
     Indication: TYPE 2 DIABETES MELLITUS
     Route: 058
     Dates: start: 20161202
  11. METFORMIN [Concomitant]
     Active Substance: METFORMIN HYDROCHLORIDE
     Indication: DIABETES MELLITUS
     Route: 048
     Dates: start: 2001

REACTIONS (6)
  - Injection site rash [Unknown]
  - Injection site warmth [Unknown]
  - Injection site nodule [Unknown]
  - Injection site pruritus [Unknown]
  - Injection site erythema [Unknown]
  - Injection site discolouration [Unknown]

NARRATIVE: CASE EVENT DATE: 20161202
